FAERS Safety Report 24707192 (Version 2)
Quarter: 2024Q4

REPORT INFORMATION
  Report Type: Spontaneous
  Country: US (occurrence: US)
  Receive Date: 20241206
  Receipt Date: 20241211
  Transmission Date: 20250115
  Serious: No
  Sender: FRESENIUS KABI
  Company Number: US-FreseniusKabi-FK202417705

PATIENT
  Age: 25 Year
  Sex: Male

DRUGS (11)
  1. DILAUDID [Suspect]
     Active Substance: HYDROMORPHONE HYDROCHLORIDE
     Indication: Pain management
     Dosage: ROUTE: IV PUSH
     Dates: start: 20151117, end: 20151117
  2. DILAUDID [Suspect]
     Active Substance: HYDROMORPHONE HYDROCHLORIDE
     Dosage: ROUTE: IV PUSH
     Dates: start: 20151117, end: 20151117
  3. DILAUDID [Suspect]
     Active Substance: HYDROMORPHONE HYDROCHLORIDE
     Dates: start: 20151117, end: 20241117
  4. DILAUDID [Suspect]
     Active Substance: HYDROMORPHONE HYDROCHLORIDE
     Dosage: ROUTE: IV PUSH
     Dates: start: 20151117, end: 20151117
  5. DILAUDID [Suspect]
     Active Substance: HYDROMORPHONE HYDROCHLORIDE
     Dates: start: 20151117, end: 20151117
  6. DILAUDID [Suspect]
     Active Substance: HYDROMORPHONE HYDROCHLORIDE
     Dosage: ROUTE: IV PUSH
     Dates: start: 20151117, end: 20151117
  7. DILAUDID [Suspect]
     Active Substance: HYDROMORPHONE HYDROCHLORIDE
     Dates: start: 20151117, end: 20151117
  8. DILAUDID [Suspect]
     Active Substance: HYDROMORPHONE HYDROCHLORIDE
     Dates: start: 20151117, end: 20151117
  9. DILAUDID [Suspect]
     Active Substance: HYDROMORPHONE HYDROCHLORIDE
  10. NORCO [Suspect]
     Active Substance: ACETAMINOPHEN\HYDROCODONE BITARTRATE
     Indication: Pain management
     Dosage: FOA: TABLET, ROUTE: ORAL
     Dates: start: 20151117, end: 20151117
  11. NORCO [Suspect]
     Active Substance: ACETAMINOPHEN\HYDROCODONE BITARTRATE
     Dosage: FOA: TABLET, ROUTE: ORAL
     Dates: start: 20151117, end: 20151117

REACTIONS (1)
  - Drug dependence [Not Recovered/Not Resolved]
